FAERS Safety Report 9601813 (Version 1)
Quarter: 2013Q4

REPORT INFORMATION
  Report Type: Spontaneous
  Country: IL (occurrence: IL)
  Receive Date: 20131007
  Receipt Date: 20131007
  Transmission Date: 20140711
  Serious: Yes (Life-Threatening)
  Sender: FDA-Public Use
  Company Number: IL-BAYER-2013-117495

PATIENT
  Age: 27 Year
  Sex: Male

DRUGS (3)
  1. CIPROFLOXACIN [Suspect]
     Indication: TYPHOID FEVER
     Dosage: UNK
  2. CEFTRIAXONE [Concomitant]
     Indication: TYPHOID FEVER
     Dosage: 2 G, QD
  3. AZITHROMYCIN [Concomitant]
     Indication: TYPHOID FEVER
     Dosage: 500 MG, QD

REACTIONS (2)
  - Myocarditis [Recovered/Resolved]
  - Drug resistance [None]
